FAERS Safety Report 8782277 (Version 1)
Quarter: 2012Q4

REPORT INFORMATION
  Report Type: 
  Country: US (occurrence: US)
  Receive Date: 20120913
  Receipt Date: 20120913
  Transmission Date: 20130627
  Serious: No
  Sender: FDA-Public Use
  Company Number: US-VERTEX PHARMACEUTICAL INC.-2012-019972

PATIENT
  Sex: Male

DRUGS (1)
  1. VX-950 [Suspect]
     Indication: HEPATITIS C
     Dosage: UNK
     Dates: start: 20120713

REACTIONS (3)
  - Dyspnoea [Unknown]
  - Fatigue [Unknown]
  - Anorectal discomfort [Unknown]
